FAERS Safety Report 7476447-6 (Version None)
Quarter: 2011Q2

REPORT INFORMATION
  Report Type: 
  Country: None (occurrence: None)
  Receive Date: 20110512
  Receipt Date: 20110505
  Transmission Date: 20111010
  Serious: Yes (Other)
  Sender: FDA-Public Use
  Company Number: US-PFIZER INC-2011055399

PATIENT
  Sex: Male

DRUGS (2)
  1. SUTENT [Suspect]
     Indication: METASTATIC RENAL CELL CARCINOMA
     Dosage: 50 MG, 1X/DAY
     Dates: start: 20110304
  2. SUTENT [Suspect]
     Dosage: 37.5 MG, 1X/DAY
     Dates: start: 20110414

REACTIONS (2)
  - HYPERTENSION [None]
  - THROMBOSIS [None]
